FAERS Safety Report 5233910-6 (Version None)
Quarter: 2007Q1

REPORT INFORMATION
  Report Type: 
  Country: None (occurrence: None)
  Receive Date: 20070208
  Receipt Date: 20070205
  Transmission Date: 20070707
  Serious: Yes (Hospitalization)
  Sender: FDA-Public Use
  Company Number: HQWYE482905FEB07

PATIENT
  Age: 59 Year
  Sex: Female

DRUGS (4)
  1. INIPOMP [Suspect]
     Dosage: ^DF^
     Route: 048
     Dates: start: 20061212, end: 20061222
  2. LEVOTHYROXINE SODIUM [Suspect]
     Dosage: ^DF^
     Route: 048
  3. ATACAND [Suspect]
     Dosage: ^DF^
     Route: 048
  4. ASPIRIN [Suspect]
     Route: 048

REACTIONS (2)
  - SUBCUTANEOUS HAEMATOMA [None]
  - THROMBOCYTOPENIA [None]
